FAERS Safety Report 17993875 (Version 1)
Quarter: 2020Q3

REPORT INFORMATION
  Report Type: Spontaneous
  Country: US (occurrence: US)
  Receive Date: 20200707
  Receipt Date: 20200707
  Transmission Date: 20201103
  Serious: Yes (Hospitalization)
  Sender: FDA-Public Use
  Company Number: None

PATIENT
  Age: 52 Year
  Sex: Male

DRUGS (7)
  1. GABAPENTIN. [Concomitant]
     Active Substance: GABAPENTIN
  2. VORICONAZOLE. [Suspect]
     Active Substance: VORICONAZOLE
  3. HUMIRA [Suspect]
     Active Substance: ADALIMUMAB
     Indication: CROHN^S DISEASE
     Route: 058
     Dates: start: 20190302
  4. NAPROXEN. [Concomitant]
     Active Substance: NAPROXEN
  5. TRAMADOL. [Concomitant]
     Active Substance: TRAMADOL
  6. SMZ/TMP [Concomitant]
     Active Substance: SULFAMETHOXAZOLE\TRIMETHOPRIM
  7. AMOXICILLIN. [Concomitant]
     Active Substance: AMOXICILLIN

REACTIONS (2)
  - Therapy interrupted [None]
  - Colon operation [None]

NARRATIVE: CASE EVENT DATE: 20200603
